FAERS Safety Report 19885735 (Version 1)
Quarter: 2021Q3

REPORT INFORMATION
  Report Type: Spontaneous
  Country: CA (occurrence: CA)
  Receive Date: 20210927
  Receipt Date: 20210927
  Transmission Date: 20211014
  Serious: Yes (Hospitalization, Other)
  Sender: FDA-Public Use
  Company Number: CA-SAMSUNG BIOEPIS-SB-2021-14937

PATIENT
  Age: 56 Year
  Sex: Male
  Weight: 92 kg

DRUGS (1)
  1. INFLIXIMAB [Suspect]
     Active Substance: INFLIXIMAB
     Indication: CROHN^S DISEASE
     Route: 042

REACTIONS (4)
  - Faecal calprotectin increased [Recovered/Resolved]
  - Haemorrhage [Recovered/Resolved]
  - Therapeutic product effect incomplete [Recovered/Resolved]
  - Haemorrhoidal haemorrhage [Recovered/Resolved]
